FAERS Safety Report 6478952-8 (Version None)
Quarter: 2009Q4

REPORT INFORMATION
  Report Type: 
  Country: None (occurrence: None)
  Receive Date: 20091207
  Receipt Date: 20090209
  Transmission Date: 20100525
  Serious: No
  Sender: FDA-Public Use
  Company Number: US-AMGEN-KDL332611

PATIENT
  Sex: Female

DRUGS (4)
  1. ENBREL [Suspect]
     Indication: PSORIASIS
     Dates: start: 20090130
  2. LEXAPRO [Concomitant]
  3. GLUCOSAMINE W/CHONDROITIN SULFATES [Concomitant]
  4. UNSPECIFIED MEDICATION [Concomitant]
     Route: 061

REACTIONS (2)
  - INJECTION SITE REACTION [None]
  - INJECTION SITE URTICARIA [None]
